FAERS Safety Report 19881601 (Version 1)
Quarter: 2021Q3

REPORT INFORMATION
  Report Type: Spontaneous
  Country: CH (occurrence: CH)
  Receive Date: 20210924
  Receipt Date: 20210924
  Transmission Date: 20211014
  Serious: Yes (Hospitalization, Other)
  Sender: FDA-Public Use
  Company Number: CH-UCBSA-2021044922

PATIENT
  Age: 40 Year
  Sex: Female
  Weight: 71 kg

DRUGS (5)
  1. VITAMIN B12 AMINO [Concomitant]
     Active Substance: CYANOCOBALAMIN
     Indication: PRODUCT USED FOR UNKNOWN INDICATION
     Route: 030
  2. ACIDUM FOLICUM [Concomitant]
     Active Substance: FOLIC ACID
     Indication: PRODUCT USED FOR UNKNOWN INDICATION
     Route: 048
  3. ADVAGRAF [Concomitant]
     Active Substance: TACROLIMUS
     Indication: PRODUCT USED FOR UNKNOWN INDICATION
     Route: 048
  4. CIMZIA [Suspect]
     Active Substance: CERTOLIZUMAB PEGOL
     Indication: UVEITIS
     Dosage: 200 MILLIGRAM 2 TIMES IN DAY
     Route: 058
     Dates: start: 20210813, end: 20210813
  5. VI?DE 3 4500/ML [Concomitant]
     Indication: PRODUCT USED FOR UNKNOWN INDICATION
     Dosage: 1 BOTTLE (10 ML) PER MONTH
     Route: 048

REACTIONS (3)
  - Angioedema [Unknown]
  - Product use in unapproved indication [Unknown]
  - Urticaria [Unknown]

NARRATIVE: CASE EVENT DATE: 20210813
